FAERS Safety Report 19945419 (Version 2)
Quarter: 2022Q4

REPORT INFORMATION
  Report Type: Spontaneous
  Country: US (occurrence: US)
  Receive Date: 20211012
  Receipt Date: 20221019
  Transmission Date: 20230113
  Serious: Yes (Disabling)
  Sender: FDA-Public Use
  Company Number: US-ORGANON-O2110USA000690

PATIENT
  Sex: Female

DRUGS (1)
  1. SINGULAIR [Suspect]
     Active Substance: MONTELUKAST SODIUM
     Dosage: TAKE 1 TABLET PO QD HS
     Route: 048
     Dates: start: 2004, end: 2012

REACTIONS (2)
  - Neuropsychiatric symptoms [Not Recovered/Not Resolved]
  - Anxiety [Not Recovered/Not Resolved]
